FAERS Safety Report 13702717 (Version 1)
Quarter: 2017Q2

REPORT INFORMATION
  Report Type: Spontaneous
  Country: US (occurrence: US)
  Receive Date: 20170629
  Receipt Date: 20170629
  Transmission Date: 20170830
  Serious: No
  Sender: FDA-Public Use
  Company Number: US-JNJFOC-20170411569

PATIENT
  Age: 45 Year
  Sex: Male

DRUGS (1)
  1. HALDOL [Suspect]
     Active Substance: HALOPERIDOL
     Indication: HALLUCINATION, AUDITORY
     Route: 048

REACTIONS (3)
  - Depressed mood [Unknown]
  - Sedation [Unknown]
  - Crying [Unknown]

NARRATIVE: CASE EVENT DATE: 20100611
